FAERS Safety Report 18611900 (Version 1)
Quarter: 2020Q4

REPORT INFORMATION
  Report Type: Spontaneous
  Country: US (occurrence: US)
  Receive Date: 20201214
  Receipt Date: 20201214
  Transmission Date: 20210114
  Serious: Yes (Other)
  Sender: FDA-Public Use
  Company Number: US-PFIZER INC-2020487631

PATIENT
  Age: 3 Decade
  Sex: Female

DRUGS (3)
  1. HYDROCORTISONE ACETATE. [Suspect]
     Active Substance: HYDROCORTISONE ACETATE
     Indication: STRESS
     Dosage: UNK
     Dates: start: 2020, end: 2020
  2. HYDROCORTISONE ACETATE. [Suspect]
     Active Substance: HYDROCORTISONE ACETATE
     Indication: ADRENOGENITAL SYNDROME
     Dosage: UNK
  3. HYDROCORTISONE ACETATE. [Suspect]
     Active Substance: HYDROCORTISONE ACETATE
     Indication: SLEEP DEFICIT

REACTIONS (8)
  - Depressed mood [Unknown]
  - Feeling abnormal [Unknown]
  - Product complaint [Unknown]
  - Adrenocortical insufficiency acute [Unknown]
  - Intentional product use issue [Unknown]
  - Hypotension [Unknown]
  - Headache [Unknown]
  - Rash [Unknown]

NARRATIVE: CASE EVENT DATE: 2020
